FAERS Safety Report 7219427-8 (Version None)
Quarter: 2011Q1

REPORT INFORMATION
  Report Type: 
  Country: None (occurrence: None)
  Receive Date: 20110111
  Receipt Date: 20101220
  Transmission Date: 20110831
  Serious: No
  Sender: FDA-Public Use
  Company Number: US-PFIZER INC-2011002874

PATIENT
  Age: 80 Year
  Sex: Female

DRUGS (1)
  1. ZITHROMAX [Suspect]
     Dosage: UNK

REACTIONS (2)
  - DRUG HYPERSENSITIVITY [None]
  - RASH [None]
